FAERS Safety Report 24954245 (Version 1)
Quarter: 2025Q1

REPORT INFORMATION
  Report Type: Other
  Country: GB (occurrence: GB)
  Receive Date: 20250211
  Receipt Date: 20250211
  Transmission Date: 20250409
  Serious: Yes (Other)
  Sender: MACLEODS
  Company Number: GB-002147023-PHHY2019GB213820

PATIENT

DRUGS (61)
  1. OLANZAPINE [Suspect]
     Active Substance: OLANZAPINE
     Indication: Schizophrenia
     Route: 048
  2. OLANZAPINE [Suspect]
     Active Substance: OLANZAPINE
     Indication: Hallucination, auditory
     Route: 048
  3. OLANZAPINE [Suspect]
     Active Substance: OLANZAPINE
     Indication: Drug ineffective
     Route: 048
  4. OLANZAPINE [Suspect]
     Active Substance: OLANZAPINE
     Route: 048
  5. QUETIAPINE [Suspect]
     Active Substance: QUETIAPINE
     Indication: Product used for unknown indication
     Route: 048
  6. QUETIAPINE [Suspect]
     Active Substance: QUETIAPINE
     Route: 048
  7. QUETIAPINE [Suspect]
     Active Substance: QUETIAPINE
     Route: 048
  8. QUETIAPINE [Suspect]
     Active Substance: QUETIAPINE
     Route: 048
  9. HALOPERIDOL [Suspect]
     Active Substance: HALOPERIDOL
     Indication: Schizophrenia
     Route: 065
  10. HALOPERIDOL [Suspect]
     Active Substance: HALOPERIDOL
     Indication: Hallucination, auditory
     Route: 065
  11. HALOPERIDOL [Suspect]
     Active Substance: HALOPERIDOL
     Route: 065
  12. HALOPERIDOL [Suspect]
     Active Substance: HALOPERIDOL
     Route: 065
  13. ARIPIPRAZOLE [Suspect]
     Active Substance: ARIPIPRAZOLE
     Indication: Hallucination, auditory
     Route: 065
  14. AMISULPRIDE [Suspect]
     Active Substance: AMISULPRIDE
     Indication: Hallucination, auditory
     Route: 048
     Dates: start: 20050215
  15. AMISULPRIDE [Suspect]
     Active Substance: AMISULPRIDE
     Route: 048
     Dates: start: 20050215
  16. AMISULPRIDE [Suspect]
     Active Substance: AMISULPRIDE
     Route: 048
  17. AMISULPRIDE [Suspect]
     Active Substance: AMISULPRIDE
     Route: 048
  18. HALDOL [Suspect]
     Active Substance: HALOPERIDOL
     Indication: Hallucination, auditory
     Route: 065
  19. HALDOL [Suspect]
     Active Substance: HALOPERIDOL
     Indication: Schizophrenia
     Route: 065
     Dates: start: 2006, end: 20171205
  20. HALDOL [Suspect]
     Active Substance: HALOPERIDOL
     Indication: Hallucination, auditory
     Route: 065
     Dates: start: 2019
  21. HALDOL [Suspect]
     Active Substance: HALOPERIDOL
     Indication: Drug ineffective
     Route: 065
  22. CLOZARIL [Suspect]
     Active Substance: CLOZAPINE
     Indication: Schizoaffective disorder
     Route: 048
     Dates: start: 20180225, end: 2019
  23. CLOZARIL [Suspect]
     Active Substance: CLOZAPINE
     Indication: Schizophrenia
     Route: 048
     Dates: start: 20181205, end: 20191205
  24. CLOZARIL [Suspect]
     Active Substance: CLOZAPINE
     Indication: Hallucination, auditory
     Dosage: UNK, TABLET
     Route: 048
     Dates: start: 20050215, end: 20171205
  25. CLOZARIL [Suspect]
     Active Substance: CLOZAPINE
     Route: 048
     Dates: start: 20150215, end: 20171205
  26. CLOZARIL [Suspect]
     Active Substance: CLOZAPINE
     Route: 048
     Dates: start: 20180205
  27. CLOZARIL [Suspect]
     Active Substance: CLOZAPINE
     Route: 048
  28. CLOZARIL [Suspect]
     Active Substance: CLOZAPINE
     Route: 048
  29. CLOZARIL [Suspect]
     Active Substance: CLOZAPINE
     Route: 048
     Dates: start: 20180205, end: 20191205
  30. CLOZARIL [Suspect]
     Active Substance: CLOZAPINE
     Route: 048
  31. CLOZARIL [Suspect]
     Active Substance: CLOZAPINE
     Dosage: UNK UNK, QD
     Route: 048
     Dates: start: 20050215, end: 20171205
  32. CLOZARIL [Suspect]
     Active Substance: CLOZAPINE
     Route: 048
  33. CLOZARIL [Suspect]
     Active Substance: CLOZAPINE
     Route: 048
  34. CLOZARIL [Suspect]
     Active Substance: CLOZAPINE
     Dosage: UNK, QD (TABLET)
     Route: 048
     Dates: start: 20180205, end: 20191205
  35. CLOZARIL [Suspect]
     Active Substance: CLOZAPINE
     Route: 048
  36. CLOZARIL [Suspect]
     Active Substance: CLOZAPINE
     Dosage: UNK, TABLET
     Route: 048
     Dates: start: 20050215, end: 20071205
  37. CLOZARIL [Suspect]
     Active Substance: CLOZAPINE
     Route: 065
     Dates: start: 20171205
  38. CLOZARIL [Suspect]
     Active Substance: CLOZAPINE
     Route: 048
  39. CLOZARIL [Suspect]
     Active Substance: CLOZAPINE
     Route: 048
  40. CLOZARIL [Suspect]
     Active Substance: CLOZAPINE
     Dosage: ONCE A DAY
     Route: 048
  41. CLOZARIL [Suspect]
     Active Substance: CLOZAPINE
     Route: 048
     Dates: start: 201909
  42. CLOZARIL [Suspect]
     Active Substance: CLOZAPINE
     Route: 048
     Dates: start: 20191205
  43. CLOZARIL [Suspect]
     Active Substance: CLOZAPINE
     Route: 048
  44. CLOZARIL [Suspect]
     Active Substance: CLOZAPINE
     Route: 048
     Dates: start: 2006, end: 20171205
  45. RISPERIDONE [Suspect]
     Active Substance: RISPERIDONE
     Indication: Hallucination, auditory
     Route: 065
  46. RISPERIDONE [Suspect]
     Active Substance: RISPERIDONE
     Indication: Schizophrenia
     Route: 065
  47. RISPERIDONE [Suspect]
     Active Substance: RISPERIDONE
     Indication: Drug ineffective
     Route: 065
  48. RISPERIDONE [Suspect]
     Active Substance: RISPERIDONE
     Route: 065
  49. RISPERDAL [Suspect]
     Active Substance: RISPERIDONE
     Indication: Hallucination, auditory
     Route: 065
  50. RISPERDAL [Suspect]
     Active Substance: RISPERIDONE
     Indication: Schizophrenia
     Route: 065
  51. RISPERDAL [Suspect]
     Active Substance: RISPERIDONE
     Route: 065
  52. RISPERDAL [Suspect]
     Active Substance: RISPERIDONE
     Route: 065
     Dates: start: 2006, end: 20171205
  53. RISPERDAL [Suspect]
     Active Substance: RISPERIDONE
     Route: 065
  54. ZUCLOPENTHIXOL HYDROCHLORIDE [Suspect]
     Active Substance: ZUCLOPENTHIXOL HYDROCHLORIDE
     Indication: Hallucination, auditory
     Route: 065
  55. ZUCLOPENTHIXOL HYDROCHLORIDE [Suspect]
     Active Substance: ZUCLOPENTHIXOL HYDROCHLORIDE
     Indication: Schizophrenia
     Route: 065
  56. ZUCLOPENTHIXOL HYDROCHLORIDE [Suspect]
     Active Substance: ZUCLOPENTHIXOL HYDROCHLORIDE
     Indication: Schizoaffective disorder
     Route: 065
     Dates: start: 2006, end: 20171205
  57. ZUCLOPENTHIXOL HYDROCHLORIDE [Suspect]
     Active Substance: ZUCLOPENTHIXOL HYDROCHLORIDE
     Route: 065
  58. ZUCLOPENTHIXOL HYDROCHLORIDE [Suspect]
     Active Substance: ZUCLOPENTHIXOL HYDROCHLORIDE
     Route: 065
  59. ZUCLOPENTHIXOL HYDROCHLORIDE [Suspect]
     Active Substance: ZUCLOPENTHIXOL HYDROCHLORIDE
     Route: 065
  60. ZUCLOPENTHIXOL HYDROCHLORIDE [Suspect]
     Active Substance: ZUCLOPENTHIXOL HYDROCHLORIDE
     Route: 065
  61. ZUCLOPENTHIXOL HYDROCHLORIDE [Suspect]
     Active Substance: ZUCLOPENTHIXOL HYDROCHLORIDE
     Route: 065
     Dates: start: 2006, end: 20171205

REACTIONS (23)
  - Schizophrenia [Not Recovered/Not Resolved]
  - Schizophrenia [Not Recovered/Not Resolved]
  - Schizophrenia [Not Recovered/Not Resolved]
  - Eosinophil count decreased [Recovered/Resolved]
  - Refusal of examination [Unknown]
  - Mental impairment [Not Recovered/Not Resolved]
  - Malaise [Not Recovered/Not Resolved]
  - Malaise [Not Recovered/Not Resolved]
  - Eating disorder [Not Recovered/Not Resolved]
  - Suicidal ideation [Unknown]
  - Intentional product misuse [Unknown]
  - Medication error [Unknown]
  - Drug abuse [Unknown]
  - Product use in unapproved indication [Unknown]
  - Drug ineffective [Unknown]
  - Drug ineffective [Unknown]
  - Food poisoning [Unknown]
  - Gastroenteritis [Unknown]
  - Ocular hyperaemia [Unknown]
  - Leukopenia [Recovered/Resolved]
  - Neutropenia [Recovered/Resolved]
  - Neutropenia [Recovered/Resolved]
  - Neutropenia [Recovered/Resolved]

NARRATIVE: CASE EVENT DATE: 20171101
